FAERS Safety Report 24979116 (Version 1)
Quarter: 2025Q1

REPORT INFORMATION
  Report Type: Spontaneous
  Country: AU (occurrence: AU)
  Receive Date: 20250218
  Receipt Date: 20250218
  Transmission Date: 20250409
  Serious: Yes (Death, Hospitalization, Other)
  Sender: AMGEN
  Company Number: AU-AMGEN-AUSSP2025028930

PATIENT
  Age: 72 Year
  Sex: Male

DRUGS (12)
  1. PROLIA [Suspect]
     Active Substance: DENOSUMAB
     Indication: Hypercalcaemia
     Route: 058
  2. IPILIMUMAB;NIVOLUMAB [Concomitant]
     Indication: Metastatic malignant melanoma
     Route: 065
     Dates: start: 202109
  3. LEUPROLIDE [Concomitant]
     Active Substance: LEUPROLIDE
     Indication: Prostate cancer
  4. BICALUTAMIDE [Concomitant]
     Active Substance: BICALUTAMIDE
     Indication: Prostate cancer
  5. ESOMEPRAZOLE [Concomitant]
     Active Substance: ESOMEPRAZOLE
  6. ACETAMINOPHEN [Concomitant]
     Active Substance: ACETAMINOPHEN
  7. IRON [Concomitant]
     Active Substance: IRON
  8. VITAMIN B12 [Concomitant]
     Active Substance: CYANOCOBALAMIN
     Indication: Deficiency anaemia
  9. SODIUM CHLORIDE [Concomitant]
     Active Substance: SODIUM CHLORIDE
     Route: 040
  10. CALCITONIN [Concomitant]
     Active Substance: CALCITONIN
     Indication: Hypercalcaemia
     Dosage: 100 INTERNATIONAL UNIT, Q6H
  11. PREDNISOLONE [Concomitant]
     Active Substance: PREDNISOLONE
     Indication: Hypercalcaemia
     Route: 048
  12. PREDNISOLONE [Concomitant]
     Active Substance: PREDNISOLONE
     Dosage: 50 MILLIGRAM, QWK

REACTIONS (4)
  - Death [Fatal]
  - Hypercalcaemia [Unknown]
  - Metastatic malignant melanoma [Unknown]
  - Off label use [Unknown]
